FAERS Safety Report 12339192 (Version 3)
Quarter: 2016Q2

REPORT INFORMATION
  Report Type: Spontaneous
  Country: DE (occurrence: DE)
  Receive Date: 20160505
  Receipt Date: 20160615
  Transmission Date: 20160815
  Serious: Yes (Other)
  Sender: FDA-Public Use
  Company Number: DE-ALLERGAN-1651830US

PATIENT
  Age: 55 Year
  Sex: Female

DRUGS (1)
  1. OZURDEX [Suspect]
     Active Substance: DEXAMETHASONE
     Indication: CYSTOID MACULAR OEDEMA
     Dosage: 0.7 MG, SINGLE
     Route: 031
     Dates: start: 20151012, end: 20151012

REACTIONS (6)
  - Corneal opacity [Recovering/Resolving]
  - Corneal decompensation [Not Recovered/Not Resolved]
  - Device dislocation [Unknown]
  - Off label use [Unknown]
  - Visual acuity reduced [Unknown]
  - Therapeutic response decreased [Unknown]

NARRATIVE: CASE EVENT DATE: 20151019
